FAERS Safety Report 12134911 (Version 1)
Quarter: 2016Q1

REPORT INFORMATION
  Report Type: Not Available
  Country: ES (occurrence: ES)
  Receive Date: 20160301
  Receipt Date: 20160301
  Transmission Date: 20160526
  Serious: Yes (Hospitalization, Disabling)
  Sender: FDA-Public Use
  Company Number: ES-ANIPHARMA-2016-ES-000002

PATIENT
  Age: 56 Year
  Sex: Male

DRUGS (4)
  1. QUETIAPINE [Concomitant]
     Active Substance: QUETIAPINE
     Dosage: 1000 MG/DAY
  2. LITHIUM CARBONATE (NON-SPECIFIC) [Suspect]
     Active Substance: LITHIUM
     Dosage: 1200 MG/DAY
  3. RISPERIDONE (NON-SPECIFIC) [Suspect]
     Active Substance: RISPERIDONE
     Dosage: 6 MG/DAY
  4. CLONAZEPAM. [Concomitant]
     Active Substance: CLONAZEPAM
     Dosage: 2 MG/DAY

REACTIONS (4)
  - Dementia [Recovered/Resolved with Sequelae]
  - Encephalopathy [Unknown]
  - Status epilepticus [Unknown]
  - Disability [Recovered/Resolved with Sequelae]
